FAERS Safety Report 16375969 (Version 1)
Quarter: 2019Q2

REPORT INFORMATION
  Report Type: Spontaneous
  Country: FR (occurrence: FR)
  Receive Date: 20190531
  Receipt Date: 20190531
  Transmission Date: 20190711
  Serious: Yes (Other)
  Sender: FDA-Public Use
  Company Number: FR-ROCHE-2329130

PATIENT
  Age: 45 Year
  Sex: Male

DRUGS (6)
  1. CALCITONIN [Concomitant]
     Active Substance: CALCITONIN
     Indication: OSTEOPOROSIS PROPHYLAXIS
     Dosage: 1 INJECTION
     Route: 062
     Dates: start: 20171206, end: 20171206
  2. VALIUM [Suspect]
     Active Substance: DIAZEPAM
     Indication: ANXIETY
     Dosage: 1 INJECTION
     Route: 065
     Dates: start: 20171206, end: 20171206
  3. MESOCAINE [Concomitant]
     Active Substance: LIDOCAINE HYDROCHLORIDE
     Indication: LOCAL ANAESTHESIA
     Dosage: 1 INJECTION
     Route: 062
     Dates: start: 20171206, end: 20171206
  4. FELDENE [Concomitant]
     Active Substance: PIROXICAM
     Indication: BACK PAIN
     Route: 062
     Dates: start: 20171206, end: 20171206
  5. INFLUVAC [Concomitant]
     Active Substance: INFLUENZA VIRUS VACCINE TRIVALENT TYPE A+B
     Indication: INFLUENZA IMMUNISATION
     Dosage: 1 INJECTION
     Route: 030
     Dates: start: 2017, end: 2017
  6. AVAMYS [Concomitant]
     Active Substance: FLUTICASONE FUROATE
     Indication: RHINITIS ALLERGIC
     Route: 045

REACTIONS (2)
  - Hypersensitivity [Recovered/Resolved]
  - Eyelid oedema [Recovered/Resolved]

NARRATIVE: CASE EVENT DATE: 20171206
